FAERS Safety Report 14762620 (Version 1)
Quarter: 2018Q2

REPORT INFORMATION
  Report Type: Other
  Country: FR (occurrence: FR)
  Receive Date: 20180416
  Receipt Date: 20180416
  Transmission Date: 20180711
  Serious: Yes (Hospitalization, Other)
  Sender: FDA-Public Use
  Company Number: FR-DENTSPLY-2018SCDP000052

PATIENT

DRUGS (7)
  1. SUFENTANIL [Suspect]
     Active Substance: SUFENTANIL
     Indication: GENERAL ANAESTHESIA
     Dosage: 25 MICROGRAM
     Route: 042
     Dates: start: 20180314, end: 20180314
  2. DEXAMETHASONE. [Suspect]
     Active Substance: DEXAMETHASONE
     Indication: GENERAL ANAESTHESIA
     Dosage: 8 MG, UNK
     Route: 042
     Dates: start: 20180314, end: 20180314
  3. TOPALGIC                           /00599202/ [Suspect]
     Active Substance: TRAMADOL HYDROCHLORIDE
     Indication: PAIN
     Dosage: 100 MG, UNK
     Route: 042
     Dates: start: 20180314, end: 20180314
  4. 2% LIDOCAINE HCL INJECTION WITH EPINEPHRINE 1-100,000 [Suspect]
     Active Substance: EPINEPHRINE\LIDOCAINE HYDROCHLORIDE
     Indication: LOCAL ANAESTHESIA
     Dosage: UNK
     Route: 042
     Dates: start: 20180314, end: 20180314
  5. PARACETAMOL B. BRAUN [Suspect]
     Active Substance: ACETAMINOPHEN
     Indication: PAIN
     Dosage: 1 G, UNK
     Route: 042
     Dates: start: 20180314, end: 20180314
  6. DROPERIDOL. [Suspect]
     Active Substance: DROPERIDOL
     Indication: PROCEDURAL NAUSEA
     Dosage: 1 DF, UNK
     Route: 042
     Dates: start: 20180314, end: 20180314
  7. PROPOFOL PANPHARMA [Suspect]
     Active Substance: PROPOFOL
     Indication: GENERAL ANAESTHESIA
     Dosage: 250 MG, UNK
     Route: 042
     Dates: start: 20180314, end: 20180314

REACTIONS (3)
  - Rash [Recovered/Resolved]
  - Tachycardia [Recovered/Resolved]
  - Anaphylactic reaction [Recovered/Resolved]

NARRATIVE: CASE EVENT DATE: 20180314
